FAERS Safety Report 8366557-3 (Version None)
Quarter: 2012Q1

REPORT INFORMATION
  Report Type: 
  Country: None (occurrence: None)
  Receive Date: 20120323
  Receipt Date: 20110407
  Transmission Date: 20120608
  Serious: Yes (Other)
  Sender: FDA-Public Use
  Company Number: 163-21880-11041159

PATIENT
  Sex: Male
  Weight: 61.2356 kg

DRUGS (1)
  1. REVLIMID [Suspect]
     Indication: MYELODYSPLASTIC SYNDROME
     Dosage: 5 MG, 1 IN 1 D, PO,   5 MG, QOD, PO
     Route: 048
     Dates: start: 20110315

REACTIONS (2)
  - BLOOD COUNT ABNORMAL [None]
  - SYNCOPE [None]
